FAERS Safety Report 24146499 (Version 1)
Quarter: 2024Q3

REPORT INFORMATION
  Report Type: Spontaneous
  Country: ID (occurrence: ID)
  Receive Date: 20240729
  Receipt Date: 20240729
  Transmission Date: 20241017
  Serious: Yes (Other)
  Sender: BAYER
  Company Number: ID-BAYER-2024A084448

PATIENT

DRUGS (3)
  1. FINERENONE [Suspect]
     Active Substance: FINERENONE
     Indication: Diabetic nephropathy
     Dosage: 10 MG, QD
     Dates: start: 20240719
  2. FINERENONE [Suspect]
     Active Substance: FINERENONE
     Indication: Diabetic nephropathy
     Dosage: 20 MG, QD
     Dates: start: 20240722
  3. CANDESARTAN CILEXETIL [Concomitant]
     Active Substance: CANDESARTAN CILEXETIL
     Indication: Diabetic nephropathy
     Dosage: UNK

REACTIONS (3)
  - Urine albumin/creatinine ratio decreased [None]
  - Albuminuria [Recovering/Resolving]
  - Wrong technique in product usage process [None]

NARRATIVE: CASE EVENT DATE: 20240722
